FAERS Safety Report 15834551 (Version 1)
Quarter: 2019Q1

REPORT INFORMATION
  Report Type: Spontaneous
  Country: GB (occurrence: GB)
  Receive Date: 20190116
  Receipt Date: 20190116
  Transmission Date: 20190417
  Serious: Yes (Life-Threatening, Disabling, Other)
  Sender: FDA-Public Use
  Company Number: GB-PFIZER INC-2019018818

PATIENT
  Age: 23 Year
  Sex: Female
  Weight: 67.12 kg

DRUGS (2)
  1. SERTRALINE HCL [Suspect]
     Active Substance: SERTRALINE HYDROCHLORIDE
     Indication: ANXIETY
     Dosage: 50 MG, UNK
     Route: 048
     Dates: start: 20180601
  2. SERTRALINE HCL [Suspect]
     Active Substance: SERTRALINE HYDROCHLORIDE
     Dosage: 100 MG, UNK
     Route: 048
     Dates: end: 20181218

REACTIONS (7)
  - Nightmare [Not Recovered/Not Resolved]
  - Body dysmorphic disorder [Unknown]
  - Abnormal dreams [Not Recovered/Not Resolved]
  - Dissociation [Not Recovered/Not Resolved]
  - Anxiety [Unknown]
  - Hallucination, visual [Recovered/Resolved with Sequelae]
  - Suicidal ideation [Unknown]

NARRATIVE: CASE EVENT DATE: 20180901
